FAERS Safety Report 20057044 (Version 1)
Quarter: 2021Q4

REPORT INFORMATION
  Report Type: Spontaneous
  Country: IN (occurrence: IN)
  Receive Date: 20211111
  Receipt Date: 20211111
  Transmission Date: 20220303
  Serious: Yes (Life-Threatening, Hospitalization, Other)
  Sender: FDA-Public Use
  Company Number: IN-Accord-244605

PATIENT
  Age: 46 Year
  Sex: Male

DRUGS (1)
  1. METHOTREXATE [Suspect]
     Active Substance: METHOTREXATE
     Indication: Psoriasis
     Route: 048

REACTIONS (7)
  - Sepsis [Recovered/Resolved]
  - Pancytopenia [Recovered/Resolved]
  - Multiple organ dysfunction syndrome [Unknown]
  - Overdose [Unknown]
  - Acute kidney injury [Recovered/Resolved]
  - Pneumonia [Unknown]
  - Skin lesion [Unknown]
